FAERS Safety Report 11785740 (Version 6)
Quarter: 2016Q2

REPORT INFORMATION
  Report Type: Spontaneous
  Country: CA (occurrence: CA)
  Receive Date: 20151130
  Receipt Date: 20160630
  Transmission Date: 20160815
  Serious: Yes (Other)
  Sender: FDA-Public Use
  Company Number: CA-PFIZER INC-2015361629

PATIENT
  Age: 46 Year
  Sex: Female

DRUGS (7)
  1. XELJANZ [Suspect]
     Active Substance: TOFACITINIB CITRATE
     Dosage: 5 MG, 2X/DAY
     Route: 048
  2. XELJANZ [Suspect]
     Active Substance: TOFACITINIB CITRATE
     Indication: RHEUMATOID ARTHRITIS
     Dosage: 5 MG, 2X/DAY
     Route: 048
     Dates: start: 20150511, end: 201510
  3. XELJANZ [Suspect]
     Active Substance: TOFACITINIB CITRATE
     Dosage: 5 MG, 2X/DAY
     Route: 048
     Dates: start: 20151122
  4. GABAPENTIN. [Suspect]
     Active Substance: GABAPENTIN
     Indication: PAIN
     Dosage: UNK
     Dates: end: 2016
  5. VALTREX [Suspect]
     Active Substance: VALACYCLOVIR HYDROCHLORIDE
     Indication: HERPES ZOSTER
     Dosage: UNK, 3X/DAY
     Dates: start: 20151021
  6. IMURAN [Suspect]
     Active Substance: AZATHIOPRINE
     Dosage: UNK
  7. NAPROXEN. [Concomitant]
     Active Substance: NAPROXEN
     Dosage: UNK

REACTIONS (10)
  - Infection [Unknown]
  - Arthralgia [Unknown]
  - Malaise [Not Recovered/Not Resolved]
  - Drug intolerance [Unknown]
  - Nasopharyngitis [Recovering/Resolving]
  - Pelvic fracture [Recovering/Resolving]
  - Condition aggravated [Recovering/Resolving]
  - Rheumatoid arthritis [Recovering/Resolving]
  - Herpes zoster [Recovering/Resolving]
  - Rib fracture [Unknown]

NARRATIVE: CASE EVENT DATE: 2015
